FAERS Safety Report 9390879 (Version 1)
Quarter: 2013Q3

REPORT INFORMATION
  Report Type: Spontaneous
  Country: US (occurrence: None)
  Receive Date: 20130705
  Receipt Date: 20130705
  Transmission Date: 20140515
  Serious: Yes (Hospitalization)
  Sender: FDA-Public Use
  Company Number: CIO13037104

PATIENT
  Sex: Female

DRUGS (1)
  1. METAMUCIL [Suspect]
     Route: 048

REACTIONS (1)
  - Diverticulitis [None]
